FAERS Safety Report 19586913 (Version 3)
Quarter: 2021Q4

REPORT INFORMATION
  Report Type: Report from Study
  Country: AU (occurrence: AU)
  Receive Date: 20210720
  Receipt Date: 20211019
  Transmission Date: 20220303
  Serious: Yes (Death, Life-Threatening, Hospitalization, Other)
  Sender: FDA-Public Use
  Company Number: AU-AMGEN-AUSNI2021108595

PATIENT
  Age: 67 Year
  Sex: Female
  Weight: 101.6 kg

DRUGS (2)
  1. CARFILZOMIB [Suspect]
     Active Substance: CARFILZOMIB
     Indication: Plasma cell myeloma
     Dosage: 120 MILLIGRAM
     Route: 065
     Dates: start: 20180524
  2. DARATUMUMAB [Concomitant]
     Active Substance: DARATUMUMAB
     Dosage: UNK
     Dates: start: 20180927

REACTIONS (2)
  - Cardiac failure [Fatal]
  - Neutropenic sepsis [Unknown]

NARRATIVE: CASE EVENT DATE: 20210604
